FAERS Safety Report 4340907-7 (Version None)
Quarter: 2004Q2

REPORT INFORMATION
  Report Type: 
  Country: None (occurrence: None)
  Receive Date: 20040413
  Receipt Date: 20040331
  Transmission Date: 20050107
  Serious: Yes (Other)
  Sender: FDA-Public Use
  Company Number: 2004017245

PATIENT
  Age: 70 Year
  Sex: Male
  Weight: 58 kg

DRUGS (4)
  1. VIAGRA [Suspect]
     Indication: ILL-DEFINED DISORDER
     Dosage: ORAL
     Route: 048
  2. PROPAFENONE HCL [Concomitant]
  3. TIMOLOL MALEATE [Concomitant]
  4. LATANOPROST [Concomitant]

REACTIONS (1)
  - OPERATIVE HAEMORRHAGE [None]
